FAERS Safety Report 18538671 (Version 3)
Quarter: 2020Q4

REPORT INFORMATION
  Report Type: Other
  Country: US (occurrence: US)
  Receive Date: 20201124
  Receipt Date: 20201231
  Transmission Date: 20210114
  Serious: Yes (Death, Hospitalization, Other)
  Sender: FDA-Public Use
  Company Number: US-ROCHE-2720048

PATIENT
  Sex: Male

DRUGS (17)
  1. ESBRIET [Suspect]
     Active Substance: PIRFENIDONE
     Indication: PULMONARY FIBROSIS
     Dosage: TAKE 1 CAPSULE BY MOUTH 3 TIMES A DAY WITH MEALS FOR 7 DAYS, THEN TAKE 2 CAPSULE(S) BY MOUTH 3 TIMES
     Route: 048
  2. TELMISARTAN. [Concomitant]
     Active Substance: TELMISARTAN
  3. ESBRIET [Suspect]
     Active Substance: PIRFENIDONE
     Indication: ACUTE LEFT VENTRICULAR FAILURE
  4. ROSUVASTATIN. [Concomitant]
     Active Substance: ROSUVASTATIN
  5. ASPIRIN. [Concomitant]
     Active Substance: ASPIRIN
  6. FUROSEMIDE. [Concomitant]
     Active Substance: FUROSEMIDE
  7. REMDESIVIR. [Concomitant]
     Active Substance: REMDESIVIR
  8. CEFTRIAXONE. [Concomitant]
     Active Substance: CEFTRIAXONE
  9. ROCEPHIN [Concomitant]
     Active Substance: CEFTRIAXONE SODIUM
  10. DEXAMETHASONE. [Concomitant]
     Active Substance: DEXAMETHASONE
  11. AZITHROMYCIN ANHYDROUS. [Concomitant]
     Active Substance: AZITHROMYCIN ANHYDROUS
  12. LOVENOX [Concomitant]
     Active Substance: ENOXAPARIN SODIUM
  13. ESBRIET [Suspect]
     Active Substance: PIRFENIDONE
     Indication: ANTIPHOSPHOLIPID SYNDROME
  14. PREDNISONE. [Concomitant]
     Active Substance: PREDNISONE
  15. METOPROLOL SUCCINATE. [Concomitant]
     Active Substance: METOPROLOL SUCCINATE
  16. METFORMIN [Concomitant]
     Active Substance: METFORMIN HYDROCHLORIDE
  17. ESBRIET [Suspect]
     Active Substance: PIRFENIDONE
     Indication: CHRONIC OBSTRUCTIVE PULMONARY DISEASE
     Route: 048

REACTIONS (16)
  - Gout [Unknown]
  - Pneumonia [Fatal]
  - Pneumonia [Unknown]
  - Acute respiratory failure [Unknown]
  - Hypotension [Unknown]
  - Hypertension [Unknown]
  - Coronary artery disease [Unknown]
  - Hyperlipidaemia [Unknown]
  - COVID-19 [Fatal]
  - Diabetes mellitus [Unknown]
  - Antiphospholipid syndrome [Unknown]
  - Hypoxia [Unknown]
  - Chronic obstructive pulmonary disease [Unknown]
  - Thrombocytopenia [Unknown]
  - Hypothyroidism [Unknown]
  - Chronic kidney disease [Unknown]
